FAERS Safety Report 6065025-1 (Version None)
Quarter: 2009Q1

REPORT INFORMATION
  Report Type: 
  Country: None (occurrence: None)
  Receive Date: 20090203
  Receipt Date: 20090203
  Transmission Date: 20090719
  Serious: Yes (Other)
  Sender: FDA-Public Use
  Company Number: None

PATIENT
  Sex: Female
  Weight: 77.1115 kg

DRUGS (1)
  1. VELCADE [Suspect]
     Indication: MULTIPLE MYELOMA
     Dosage: 2MG IV BOLUS
     Route: 040
     Dates: start: 20081211, end: 20090127

REACTIONS (3)
  - ATRIAL FIBRILLATION [None]
  - ELECTROCARDIOGRAM T WAVE AMPLITUDE DECREASED [None]
  - HERPES ZOSTER [None]
